FAERS Safety Report 4839045-6 (Version None)
Quarter: 2005Q4

REPORT INFORMATION
  Report Type: 
  Country: None (occurrence: None)
  Receive Date: 20051031
  Receipt Date: 20051004
  Transmission Date: 20060501
  Serious: Yes (Other)
  Sender: FDA-Public Use
  Company Number: 200516596US

PATIENT
  Age: 25 Year
  Sex: Male
  Weight: 104 kg

DRUGS (3)
  1. KETEK [Suspect]
     Indication: PHARYNGITIS
     Dosage: 400 MG QID PO
     Route: 048
     Dates: start: 20050601, end: 20050602
  2. KETEK [Suspect]
     Indication: SINUSITIS
     Dosage: 400 MG QID PO
     Route: 048
     Dates: start: 20050601, end: 20050602
  3. LORATADINE (CLARITIN) [Concomitant]

REACTIONS (9)
  - ARTHRALGIA [None]
  - DYSPNOEA [None]
  - DYSPNOEA EXACERBATED [None]
  - FACE OEDEMA [None]
  - SERUM SICKNESS [None]
  - SWELLING FACE [None]
  - THROAT TIGHTNESS [None]
  - URTICARIA [None]
  - URTICARIA GENERALISED [None]
